FAERS Safety Report 22227715 (Version 1)
Quarter: 2023Q2

REPORT INFORMATION
  Report Type: Spontaneous
  Country: US (occurrence: None)
  Receive Date: 20230417
  Receipt Date: 20230417
  Transmission Date: 20230722
  Serious: Yes (Death)
  Sender: FDA-Public Use
  Company Number: None

PATIENT
  Age: 69 Year
  Sex: Female
  Weight: 57.61 kg

DRUGS (2)
  1. VELTASSA [Suspect]
     Active Substance: PATIROMER
     Indication: Renal transplant
     Dosage: 8.4 G DAILY MIX+ TAKE BY MOUTH ?
     Route: 048
     Dates: start: 20220323, end: 20230323
  2. CINACALCET [Suspect]
     Active Substance: CINACALCET
     Indication: Renal transplant
     Dosage: 30 MG DAILY BY MOUTH
     Route: 048
     Dates: start: 20220413, end: 20230323

REACTIONS (1)
  - Cardiac arrest [None]

NARRATIVE: CASE EVENT DATE: 20230323
